FAERS Safety Report 11922773 (Version 1)
Quarter: 2016Q1

REPORT INFORMATION
  Report Type: Spontaneous
  Country: US (occurrence: US)
  Receive Date: 20160115
  Receipt Date: 20160115
  Transmission Date: 20160526
  Serious: Yes (Other)
  Sender: FDA-Public Use
  Company Number: US-B.I. PHARMACEUTICALS,INC./RIDGEFIELD-2016-BI-01656BI

PATIENT
  Sex: Female
  Weight: 2.9 kg

DRUGS (1)
  1. CATAPRES [Suspect]
     Active Substance: CLONIDINE HYDROCHLORIDE
     Indication: HYPERTENSION
     Dosage: FORMULATION: PATCH
     Route: 064

REACTIONS (2)
  - Premature baby [Unknown]
  - Nonreassuring foetal heart rate pattern [Unknown]
